FAERS Safety Report 5712366-0 (Version None)
Quarter: 2008Q2

REPORT INFORMATION
  Report Type: 
  Country: None (occurrence: None)
  Receive Date: 20080418
  Receipt Date: 20080411
  Transmission Date: 20081010
  Serious: Yes (Death, Hospitalization)
  Sender: FDA-Public Use
  Company Number: ABILO-08-0124

PATIENT
  Age: 58 Year
  Sex: Female

DRUGS (11)
  1. ABRAXANE [Suspect]
     Indication: BREAST CANCER METASTATIC
     Dosage: (2 WEEKS ON, 1 WEEK OFF), INTRAVENOUS
     Route: 042
     Dates: start: 20071010, end: 20080403
  2. CARBOPLATIN [Concomitant]
  3. ZOLEDRONIC ACID [Concomitant]
  4. FULVESTRANT (FULVESTRANT) [Concomitant]
  5. PANTOPRAZOLE SODIUM [Concomitant]
  6. KEFLEX (CEFALEXIN MONHYDRATE) [Concomitant]
  7. CALCIUM (CALCIUM) [Concomitant]
  8. PHYTONADIONE [Concomitant]
  9. MULTI-VITAMIN [Concomitant]
  10. VICODIN [Concomitant]
  11. HYDROCODONE (HYDROCODONE) [Concomitant]

REACTIONS (44)
  - ABDOMINAL DISCOMFORT [None]
  - ABDOMINAL DISTENSION [None]
  - ABDOMINAL PAIN [None]
  - ABDOMINAL PAIN UPPER [None]
  - ACUTE MYOCARDIAL INFARCTION [None]
  - ALANINE AMINOTRANSFERASE INCREASED [None]
  - ASCITES [None]
  - ASPARTATE AMINOTRANSFERASE INCREASED [None]
  - BLOOD ALKALINE PHOSPHATASE INCREASED [None]
  - BLOOD CHLORIDE DECREASED [None]
  - BLOOD CREATININE INCREASED [None]
  - BLOOD SODIUM DECREASED [None]
  - BLOOD UREA INCREASED [None]
  - BODY TEMPERATURE DECREASED [None]
  - CHEST PAIN [None]
  - COLITIS ISCHAEMIC [None]
  - CREPITATIONS [None]
  - DIALYSIS [None]
  - DISEASE PROGRESSION [None]
  - DYSPNOEA [None]
  - ELECTROCARDIOGRAM ABNORMAL [None]
  - ENTERITIS [None]
  - HAEMOGLOBIN DECREASED [None]
  - HEPATIC FAILURE [None]
  - HEPATIC NECROSIS [None]
  - HEPATITIS [None]
  - HEPATOMEGALY [None]
  - HYPERKALAEMIA [None]
  - HYPERPHOSPHATAEMIA [None]
  - INTERNATIONAL NORMALISED RATIO INCREASED [None]
  - INTESTINAL ISCHAEMIA [None]
  - INTRAVASCULAR HAEMOLYSIS [None]
  - LACTIC ACIDOSIS [None]
  - MALIGNANT NEOPLASM PROGRESSION [None]
  - METASTASES TO BONE [None]
  - METASTASES TO LIVER [None]
  - MULTI-ORGAN FAILURE [None]
  - OBSTRUCTION [None]
  - OCULAR ICTERUS [None]
  - ORAL INTAKE REDUCED [None]
  - PANCREATITIS [None]
  - SEPSIS [None]
  - TENDERNESS [None]
  - TUMOUR LYSIS SYNDROME [None]
